FAERS Safety Report 23745995 (Version 1)
Quarter: 2024Q2

REPORT INFORMATION
  Report Type: Spontaneous
  Country: US (occurrence: US)
  Receive Date: 20240416
  Receipt Date: 20240416
  Transmission Date: 20240716
  Serious: Yes (Other)
  Sender: FDA-Public Use
  Company Number: US-AMAROX PHARMA-HET2024US01012

PATIENT
  Age: 63 Year
  Sex: Male

DRUGS (4)
  1. DEFERASIROX [Suspect]
     Active Substance: DEFERASIROX
     Indication: Serum ferritin increased
     Dosage: 720 MILLIGRAM, BID
     Route: 065
  2. DEFERASIROX [Suspect]
     Active Substance: DEFERASIROX
     Dosage: 720 MILLIGRAM, QD (TITRATED DOWN FOR 1 YEAR)
     Route: 065
  3. DEFERASIROX [Suspect]
     Active Substance: DEFERASIROX
     Dosage: 360 MILLIGRAM, QD (REDUCTION DOWN TO 360 MILLIGRAM DAILY FOR 1 MONTH PRIOR TO PRESENTATION TO OPHTHA
     Route: 065
  4. DEFERASIROX [Suspect]
     Active Substance: DEFERASIROX
     Dosage: 360 MILLIGRAM (4 TIMES PER WEEK)
     Route: 065

REACTIONS (1)
  - Retinopathy [Unknown]
